FAERS Safety Report 16661433 (Version 14)
Quarter: 2022Q2

REPORT INFORMATION
  Report Type: Spontaneous
  Country: US (occurrence: US)
  Receive Date: 20190802
  Receipt Date: 20220426
  Transmission Date: 20220720
  Serious: No
  Sender: FDA-Public Use
  Company Number: US-PFIZER INC-2019332970

PATIENT
  Age: 76 Year
  Sex: Male
  Weight: 76 kg

DRUGS (20)
  1. LYRICA [Suspect]
     Active Substance: PREGABALIN
     Indication: Diabetic neuropathy
     Dosage: 300 MG, 2X/DAY
     Route: 048
     Dates: start: 20190725, end: 2019
  2. LYRICA [Suspect]
     Active Substance: PREGABALIN
     Indication: Polyneuropathy
     Dosage: 300 MG, 1X/DAY
     Route: 048
     Dates: start: 2019, end: 2019
  3. LYRICA [Suspect]
     Active Substance: PREGABALIN
     Indication: Neuropathy peripheral
     Dosage: 150 MG, 2X/DAY
     Route: 048
     Dates: start: 2019, end: 2019
  4. LYRICA [Suspect]
     Active Substance: PREGABALIN
     Indication: Congenital neuropathy
     Dosage: 75 MG, 2X/DAY
     Route: 048
     Dates: start: 2019, end: 2019
  5. LYRICA [Suspect]
     Active Substance: PREGABALIN
     Indication: Neuralgia
     Dosage: 150 MG, 1X/DAY
     Route: 048
  6. LYRICA [Suspect]
     Active Substance: PREGABALIN
     Indication: Neuropathy peripheral
  7. LYRICA [Suspect]
     Active Substance: PREGABALIN
     Indication: Pain
  8. CLOPIDOGREL [Concomitant]
     Active Substance: CLOPIDOGREL BISULFATE
     Indication: Vascular graft
     Dosage: 75 MG, 1X/DAY (1 TABLET DAILY)
     Dates: start: 201604
  9. LISINOPRIL [Concomitant]
     Active Substance: LISINOPRIL
     Indication: Vascular graft
     Dosage: 5 MG, DAILY (1 TABLET DAILY)
     Dates: start: 201604
  10. LISINOPRIL [Concomitant]
     Active Substance: LISINOPRIL
     Dosage: 25 MG, 1X/DAY
     Route: 048
  11. ROSUVASTATIN [Concomitant]
     Active Substance: ROSUVASTATIN
     Indication: Vascular graft
     Dosage: 40 MG, 1X/DAY
     Dates: start: 201604
  12. ASPIRIN [Concomitant]
     Active Substance: ASPIRIN
     Indication: Vascular graft
     Dosage: 81 MG, 1X/DAY
     Route: 048
     Dates: start: 201604
  13. METFORMIN HYDROCHLORIDE [Concomitant]
     Active Substance: METFORMIN HYDROCHLORIDE
     Indication: Glycosylated haemoglobin abnormal
     Dosage: 750 MG, 1X/DAY
     Dates: start: 201905
  14. ACETAMINOPHEN\HYDROCODONE [Concomitant]
     Active Substance: ACETAMINOPHEN\HYDROCODONE
     Dosage: UNK, AS NEEDED (5-325MG TABLET 1 TABLET AS NEEDED ORALLY EVERY 6 HRS)
     Route: 048
  15. METOPROLOL SUCCINATE [Concomitant]
     Active Substance: METOPROLOL SUCCINATE
     Dosage: 25 MG, 1X/DAY
     Route: 048
  16. ATORVASTATIN CALCIUM [Concomitant]
     Active Substance: ATORVASTATIN CALCIUM
     Dosage: 80 MG, 1X/DAY
     Route: 048
  17. IBUPROFEN [Concomitant]
     Active Substance: IBUPROFEN
     Dosage: 800 MG, 3X/DAY
     Route: 048
  18. CLOPIDOGREL BISULFATE [Concomitant]
     Active Substance: CLOPIDOGREL BISULFATE
     Dosage: 75 MG, 1X/DAY
     Route: 048
  19. HYDROXYZINE HYDROCHLORIDE [Concomitant]
     Active Substance: HYDROXYZINE HYDROCHLORIDE
     Dosage: 1 DF, 3X/DAY (25 TABLET TAKE 1 TABLET BY MOUTH EVERY 8 HOURS FOR 10DAYS)
     Route: 048
  20. TAMSULOSIN HYDROCHLORIDE [Concomitant]
     Active Substance: TAMSULOSIN HYDROCHLORIDE
     Dosage: 0.4 MG, 1X/DAY
     Route: 048

REACTIONS (8)
  - Intentional product misuse [Unknown]
  - Fatigue [Unknown]
  - Dizziness [Unknown]
  - Somnolence [Unknown]
  - Swelling [Unknown]
  - Tenderness [Unknown]
  - Sedation [Unknown]
  - Glycosylated haemoglobin increased [Unknown]

NARRATIVE: CASE EVENT DATE: 20190101
